FAERS Safety Report 7837892-X (Version None)
Quarter: 2011Q4

REPORT INFORMATION
  Report Type: 
  Country: None (occurrence: None)
  Receive Date: 20111024
  Receipt Date: 20111014
  Transmission Date: 20120403
  Serious: Yes (Hospitalization, Other)
  Sender: FDA-Public Use
  Company Number: JP-BAXTER-2011BH023862

PATIENT
  Age: 32 Year
  Weight: 71 kg

DRUGS (2)
  1. BUMINATE 5% [Suspect]
     Route: 042
     Dates: start: 20110721, end: 20110721
  2. BUMINATE 5% [Suspect]
     Indication: PLASMAPHERESIS
     Route: 042
     Dates: start: 20110719, end: 20110719

REACTIONS (4)
  - SEPSIS [None]
  - BODY TEMPERATURE INCREASED [None]
  - TREMOR [None]
  - DYSPNOEA [None]
